FAERS Safety Report 18869194 (Version 1)
Quarter: 2021Q1

REPORT INFORMATION
  Report Type: Report from Study
  Country: CA (occurrence: CA)
  Receive Date: 20210209
  Receipt Date: 20210209
  Transmission Date: 20210420
  Serious: Yes (Other)
  Sender: FDA-Public Use
  Company Number: NVSC2021CA023742

PATIENT
  Age: 62 Year
  Sex: Female

DRUGS (1)
  1. AFINITOR [Suspect]
     Active Substance: EVEROLIMUS
     Indication: BREAST CANCER
     Dosage: 10 MG, BID
     Route: 048
     Dates: start: 20201220, end: 20210122

REACTIONS (8)
  - Aphasia [Unknown]
  - Pulmonary embolism [Unknown]
  - Taste disorder [Unknown]
  - Rash [Unknown]
  - Decreased appetite [Unknown]
  - Abdominal pain [Unknown]
  - Nausea [Unknown]
  - Aptyalism [Unknown]

NARRATIVE: CASE EVENT DATE: 20210113
